FAERS Safety Report 6157125-2 (Version None)
Quarter: 2009Q2

REPORT INFORMATION
  Report Type: 
  Country: None (occurrence: None)
  Receive Date: 20090416
  Receipt Date: 20090406
  Transmission Date: 20091009
  Serious: Yes (Other)
  Sender: FDA-Public Use
  Company Number: IS-JNJFOC-20090300393

PATIENT
  Sex: Male
  Weight: 90 kg

DRUGS (3)
  1. REMICADE [Suspect]
     Indication: CAMPYLOBACTER GASTROENTERITIS
     Route: 042
  2. REMICADE [Suspect]
     Indication: REITER'S SYNDROME
     Route: 042
  3. METHOTREXATE [Concomitant]

REACTIONS (1)
  - PROSTATE CANCER RECURRENT [None]
